FAERS Safety Report 6645768-9 (Version None)
Quarter: 2010Q1

REPORT INFORMATION
  Report Type: 
  Country: None (occurrence: None)
  Receive Date: 20100318
  Receipt Date: 20100318
  Transmission Date: 20100710
  Serious: Yes (Life-Threatening)
  Sender: FDA-Public Use
  Company Number: None

PATIENT
  Age: 80 Year
  Sex: Male
  Weight: 75 kg

DRUGS (2)
  1. ZIPRASIDONE HCL [Suspect]
     Indication: AGITATION
     Dosage: 10 MG ONE TIME IM I DOSE
     Route: 030
     Dates: start: 20090828, end: 20090828
  2. ZIPRASIDONE HCL [Suspect]
     Indication: RESTLESSNESS
     Dosage: 10 MG ONE TIME IM I DOSE
     Route: 030
     Dates: start: 20090828, end: 20090828

REACTIONS (5)
  - ANOXIC ENCEPHALOPATHY [None]
  - CARDIAC ARREST [None]
  - LOSS OF CONSCIOUSNESS [None]
  - TORSADE DE POINTES [None]
  - VENTRICULAR FIBRILLATION [None]
